FAERS Safety Report 8790815 (Version 1)
Quarter: 2012Q4

REPORT INFORMATION
  Report Type: Spontaneous
  Country: US (occurrence: None)
  Receive Date: 20120912
  Receipt Date: 20120912
  Transmission Date: 20130627
  Serious: No
  Sender: FDA-Public Use
  Company Number: None

PATIENT
  Age: 62 Year
  Sex: Male
  Weight: 105.6 kg

DRUGS (1)
  1. DABIGATRAN [Suspect]
     Indication: ATRIAL FIBRILLATION
     Route: 048
     Dates: start: 20120113, end: 20120210

REACTIONS (5)
  - Nausea [None]
  - Vomiting [None]
  - Gastric haemorrhage [None]
  - Blood urea increased [None]
  - Blood creatinine increased [None]
